FAERS Safety Report 21114129 (Version 1)
Quarter: 2022Q3

REPORT INFORMATION
  Report Type: Spontaneous
  Country: US (occurrence: None)
  Receive Date: 20220721
  Receipt Date: 20220721
  Transmission Date: 20221027
  Serious: No
  Sender: FDA-Public Use
  Company Number: None

PATIENT

DRUGS (1)
  1. SENSORCAINE MPF [Suspect]
     Active Substance: BUPIVACAINE HYDROCHLORIDE
     Dosage: OTHER FREQUENCY : SINGLE DOSE VIAL;?OTHER ROUTE : EPIDURAL + RETROBULBAR;?
     Route: 050

REACTIONS (3)
  - Product label issue [None]
  - Product label confusion [None]
  - Circumstance or information capable of leading to medication error [None]
